FAERS Safety Report 15605725 (Version 3)
Quarter: 2019Q2

REPORT INFORMATION
  Report Type: Report from Study
  Country: JP (occurrence: JP)
  Receive Date: 20181112
  Receipt Date: 20190412
  Transmission Date: 20190711
  Serious: Yes (Hospitalization, Other)
  Sender: FDA-Public Use
  Company Number: JP-ROCHE-2211495

PATIENT
  Age: 70 Year
  Sex: Male
  Weight: 66 kg

DRUGS (40)
  1. RITUXIMAB. [Suspect]
     Active Substance: RITUXIMAB
     Indication: RENAL TRANSPLANT
     Route: 041
     Dates: start: 20170411, end: 20170411
  2. GRACEPTOR [Suspect]
     Active Substance: TACROLIMUS
     Indication: RENAL TRANSPLANT
     Route: 048
     Dates: start: 20170408, end: 20170413
  3. BAKTAR [Concomitant]
     Active Substance: SULFAMETHOXAZOLE\TRIMETHOPRIM
     Route: 048
     Dates: start: 201806
  4. GRACEPTOR [Suspect]
     Active Substance: TACROLIMUS
     Route: 048
     Dates: start: 20170812, end: 20171011
  5. MYCOPHENOLATE MOFETIL. [Suspect]
     Active Substance: MYCOPHENOLATE MOFETIL
     Indication: RENAL TRANSPLANT
     Route: 048
     Dates: start: 20170407, end: 20170407
  6. MYCOPHENOLATE MOFETIL. [Suspect]
     Active Substance: MYCOPHENOLATE MOFETIL
     Route: 048
     Dates: start: 20170408, end: 20170413
  7. MYCOPHENOLATE MOFETIL. [Suspect]
     Active Substance: MYCOPHENOLATE MOFETIL
     Route: 048
     Dates: start: 20170527, end: 20170616
  8. RINDERON [BETAMETHASONE] [Concomitant]
     Active Substance: BETAMETHASONE
     Route: 042
     Dates: start: 20170602, end: 20170602
  9. NEO-MINOPHAGEN C [Concomitant]
     Active Substance: AMMONIUM GLYCYRRHIZATE
     Route: 042
     Dates: start: 20170602, end: 20170602
  10. BAYASPIRIN [Concomitant]
     Active Substance: ASPIRIN
     Indication: MYOCARDIAL INFARCTION
     Route: 048
  11. METHYLPREDNISOLONE SODIUM SUCCINATE. [Concomitant]
     Active Substance: METHYLPREDNISOLONE SODIUM SUCCINATE
     Route: 042
     Dates: start: 20170603, end: 20170603
  12. METHYLPREDNISOLONE SODIUM SUCCINATE. [Concomitant]
     Active Substance: METHYLPREDNISOLONE SODIUM SUCCINATE
     Route: 042
     Dates: start: 20170606, end: 20170606
  13. GRACEPTOR [Suspect]
     Active Substance: TACROLIMUS
     Route: 048
     Dates: start: 20171012, end: 20171012
  14. MEDROL [Suspect]
     Active Substance: METHYLPREDNISOLONE
     Route: 048
     Dates: start: 20170608, end: 20170608
  15. FEBURIC [Concomitant]
     Active Substance: FEBUXOSTAT
     Indication: HYPERURICAEMIA
     Route: 048
     Dates: start: 201806
  16. METHYLPREDNISOLONE SODIUM SUCCINATE. [Concomitant]
     Active Substance: METHYLPREDNISOLONE SODIUM SUCCINATE
     Indication: RENAL TRANSPLANT
     Route: 042
     Dates: start: 20170602, end: 20170602
  17. BASILIXIMAB [Concomitant]
     Active Substance: BASILIXIMAB
     Indication: RENAL TRANSPLANT
     Route: 042
     Dates: start: 20170602, end: 20170602
  18. SOLU-MEDROL [Concomitant]
     Active Substance: METHYLPREDNISOLONE SODIUM SUCCINATE
     Indication: RENAL TRANSPLANT
     Route: 042
     Dates: start: 20171013, end: 20171014
  19. ARTIST [Concomitant]
     Active Substance: CARVEDILOL
     Indication: HYPERTENSION
     Route: 048
  20. AVOLVE [Concomitant]
     Active Substance: DUTASTERIDE
     Indication: BENIGN PROSTATIC HYPERPLASIA
     Route: 048
     Dates: start: 201806
  21. GRACEPTOR [Suspect]
     Active Substance: TACROLIMUS
     Route: 048
     Dates: start: 20171013
  22. MEDROL [Suspect]
     Active Substance: METHYLPREDNISOLONE
     Route: 048
     Dates: start: 20180609, end: 20180609
  23. LIVALO [Concomitant]
     Active Substance: PITAVASTATIN CALCIUM
     Indication: DYSLIPIDAEMIA
     Route: 048
     Dates: start: 201806
  24. MEDROL [Suspect]
     Active Substance: METHYLPREDNISOLONE
     Indication: RENAL TRANSPLANT
     Route: 048
     Dates: start: 20170408, end: 20170413
  25. MYCOPHENOLATE MOFETIL. [Suspect]
     Active Substance: MYCOPHENOLATE MOFETIL
     Route: 048
     Dates: start: 20170526, end: 20170526
  26. MYCOPHENOLATE MOFETIL. [Suspect]
     Active Substance: MYCOPHENOLATE MOFETIL
     Route: 048
     Dates: start: 20170617, end: 20170701
  27. BASILIXIMAB [Concomitant]
     Active Substance: BASILIXIMAB
     Route: 042
     Dates: start: 20170606, end: 20170606
  28. METHYLPREDNISOLONE SODIUM SUCCINATE. [Concomitant]
     Active Substance: METHYLPREDNISOLONE SODIUM SUCCINATE
     Route: 042
     Dates: start: 20170605, end: 20170605
  29. RITUXIMAB. [Suspect]
     Active Substance: RITUXIMAB
     Route: 041
     Dates: start: 20170602, end: 20170602
  30. GRACEPTOR [Suspect]
     Active Substance: TACROLIMUS
     Route: 048
     Dates: start: 20170526, end: 20170601
  31. GRACEPTOR [Suspect]
     Active Substance: TACROLIMUS
     Route: 048
     Dates: start: 20170602, end: 20170811
  32. MEDROL [Suspect]
     Active Substance: METHYLPREDNISOLONE
     Route: 048
     Dates: start: 20170527, end: 20170601
  33. MEDROL [Suspect]
     Active Substance: METHYLPREDNISOLONE
     Route: 048
     Dates: start: 20170607, end: 20170607
  34. MYCOPHENOLATE MOFETIL. [Suspect]
     Active Substance: MYCOPHENOLATE MOFETIL
     Route: 048
     Dates: start: 20170702
  35. RABEPRAZOLE SODIUM. [Concomitant]
     Active Substance: RABEPRAZOLE SODIUM
     Indication: GASTROOESOPHAGEAL REFLUX DISEASE
     Route: 048
  36. MEDROL [Suspect]
     Active Substance: METHYLPREDNISOLONE
     Route: 048
     Dates: start: 20170610, end: 20170613
  37. MEDROL [Suspect]
     Active Substance: METHYLPREDNISOLONE
     Route: 048
     Dates: start: 20170614
  38. RINDERON [BETAMETHASONE] [Concomitant]
     Active Substance: BETAMETHASONE
     Indication: PREMEDICATION
     Route: 042
     Dates: start: 20170411, end: 20170411
  39. NEO-MINOPHAGEN C [Concomitant]
     Active Substance: AMMONIUM GLYCYRRHIZATE
     Indication: PREMEDICATION
     Route: 042
     Dates: start: 20170411, end: 20170411
  40. METHYLPREDNISOLONE SODIUM SUCCINATE. [Concomitant]
     Active Substance: METHYLPREDNISOLONE SODIUM SUCCINATE
     Route: 042
     Dates: start: 20170604, end: 20170604

REACTIONS (2)
  - Hyperamylasaemia [Recovering/Resolving]
  - Lipase increased [Recovering/Resolving]

NARRATIVE: CASE EVENT DATE: 20170413
